FAERS Safety Report 9465271 (Version 2)
Quarter: 2013Q3

REPORT INFORMATION
  Report Type: Spontaneous
  Country: US (occurrence: US)
  Receive Date: 20130819
  Receipt Date: 20130819
  Transmission Date: 20140515
  Serious: Yes (Hospitalization)
  Sender: FDA-Public Use
  Company Number: US-ROCHE-1200119

PATIENT
  Sex: Female

DRUGS (7)
  1. PEGASYS [Suspect]
     Indication: CHRONIC HEPATITIS C
     Route: 058
     Dates: start: 20130217
  2. RIBAVIRIN [Suspect]
     Indication: CHRONIC HEPATITIS C
     Dosage: DIVIDED DOSES
     Route: 048
     Dates: start: 20130217
  3. VALIUM [Concomitant]
  4. TRAMADOL [Concomitant]
  5. CELEXA [Concomitant]
  6. FLONASE [Concomitant]
     Indication: ASTHMA
     Route: 065
  7. AMOXICILLIN [Concomitant]

REACTIONS (13)
  - Vaginal infection [Recovering/Resolving]
  - Bacterial test [Recovering/Resolving]
  - Hepatic pain [Unknown]
  - Injection site reaction [Unknown]
  - Rash erythematous [Unknown]
  - Burning sensation [Unknown]
  - Pruritus [Unknown]
  - Urinary retention [Unknown]
  - Vomiting [Unknown]
  - Platelet count abnormal [Unknown]
  - Fatigue [Unknown]
  - Injection site bruising [Unknown]
  - Dyspnoea [Unknown]
